FAERS Safety Report 6894297-6 (Version None)
Quarter: 2010Q3

REPORT INFORMATION
  Report Type: 
  Country: None (occurrence: None)
  Receive Date: 20100802
  Receipt Date: 20100722
  Transmission Date: 20110219
  Serious: Yes (Other)
  Sender: FDA-Public Use
  Company Number: US-ASTRAZENECA-2008UW25707

PATIENT
  Age: 658 Month
  Sex: Female
  Weight: 90.7 kg

DRUGS (4)
  1. CRESTOR [Suspect]
     Indication: BLOOD CHOLESTEROL INCREASED
     Route: 048
     Dates: start: 20070901
  2. ESTROGEN [Concomitant]
  3. SYNTHROID [Concomitant]
  4. ZOCOR [Concomitant]

REACTIONS (6)
  - ARTHRITIS [None]
  - BACK PAIN [None]
  - KNEE OPERATION [None]
  - MENISCUS OPERATION [None]
  - MYALGIA [None]
  - PAIN IN EXTREMITY [None]
